FAERS Safety Report 8345349-5 (Version None)
Quarter: 2012Q2

REPORT INFORMATION
  Report Type: 
  Country: None (occurrence: None)
  Receive Date: 20120504
  Receipt Date: 20120418
  Transmission Date: 20120825
  Serious: Yes (Hospitalization)
  Sender: FDA-Public Use
  Company Number: ACO_30166_2012

PATIENT
  Age: 71 Year
  Sex: Female

DRUGS (3)
  1. FAMPYRA (DALFAMPRIDINE) TABLET, 10MG [Suspect]
     Indication: MULTIPLE SCLEROSIS
     Dosage: 10 MG, BID, ORAL
     Route: 048
     Dates: start: 20111001, end: 20111201
  2. METOPROLOL TARTRATE [Concomitant]
  3. ALL OTHER THERAPEUTIC PRODUCTS [Concomitant]

REACTIONS (9)
  - GAIT DISTURBANCE [None]
  - BLADDER PAIN [None]
  - DIZZINESS [None]
  - BACK PAIN [None]
  - SKELETAL INJURY [None]
  - HALLUCINATION [None]
  - POLLAKIURIA [None]
  - FATIGUE [None]
  - FALL [None]
